FAERS Safety Report 24001416 (Version 1)
Quarter: 2024Q2

REPORT INFORMATION
  Report Type: Spontaneous
  Country: NL (occurrence: NL)
  Receive Date: 20240621
  Receipt Date: 20240621
  Transmission Date: 20240716
  Serious: Yes (Hospitalization, Other)
  Sender: FDA-Public Use
  Company Number: NL-ANIPHARMA-2024-NL-000025

PATIENT
  Age: 42 Year
  Sex: Male
  Weight: 65.9 kg

DRUGS (9)
  1. FLUVOXAMINE [Suspect]
     Active Substance: FLUVOXAMINE
     Indication: Schizoaffective disorder
     Dosage: 25 MG
     Dates: start: 2021
  2. VALPROIC ACID [Suspect]
     Active Substance: VALPROIC ACID
     Indication: Schizoaffective disorder
     Dosage: 2 GRAMS DAILY
     Dates: start: 202109
  3. CLOZAPINE [Suspect]
     Active Substance: CLOZAPINE
     Indication: Schizoaffective disorder
     Dosage: 600 MG ONCE DAILY
     Dates: start: 201901
  4. CARBAMAZEPINE [Suspect]
     Active Substance: CARBAMAZEPINE
     Indication: Schizoaffective disorder
     Dosage: 200 MG TWICE DAILY
     Dates: start: 2021
  5. GLYCOPYRRONIUM [Concomitant]
     Active Substance: GLYCOPYRRONIUM
     Dosage: 2?MG AT BEDTIME
  6. LACTULOSE [Concomitant]
     Active Substance: LACTULOSE
     Dosage: 30 ML
  7. MEMANTINE [Concomitant]
     Active Substance: MEMANTINE
     Dosage: 20 MG
  8. LORAZEPAM [Concomitant]
     Active Substance: LORAZEPAM
     Dosage: AS NEEDED
  9. DROPERIDOL [Concomitant]
     Active Substance: DROPERIDOL
     Dosage: AS NEEDED

REACTIONS (2)
  - Ileus paralytic [Recovering/Resolving]
  - Drug interaction [Recovering/Resolving]

NARRATIVE: CASE EVENT DATE: 20210101
